FAERS Safety Report 19639318 (Version 1)
Quarter: 2021Q3

REPORT INFORMATION
  Report Type: Spontaneous
  Country: US (occurrence: US)
  Receive Date: 20210730
  Receipt Date: 20210730
  Transmission Date: 20211014
  Serious: No
  Sender: FDA-Public Use
  Company Number: US-GLAXOSMITHKLINE-USCH2021049230

PATIENT

DRUGS (6)
  1. MOTRIN [Suspect]
     Active Substance: IBUPROFEN
     Indication: ABDOMINAL PAIN UPPER
  2. ADVIL PM [Suspect]
     Active Substance: DIPHENHYDRAMINE CITRATE\IBUPROFEN
     Indication: BACK PAIN
     Dosage: UNK,EFFECT WITHIN 20 MINUTES
  3. MOTRIN [Suspect]
     Active Substance: IBUPROFEN
     Indication: BACK PAIN
     Dosage: UNK,NO  EFFECT
  4. ADVIL PM [Suspect]
     Active Substance: DIPHENHYDRAMINE CITRATE\IBUPROFEN
     Indication: ABDOMINAL PAIN UPPER
  5. ASPIRIN. [Suspect]
     Active Substance: ASPIRIN
     Indication: BACK PAIN
     Dosage: UNK,NO EFFECT
  6. ASPIRIN. [Suspect]
     Active Substance: ASPIRIN
     Indication: ABDOMINAL PAIN UPPER

REACTIONS (3)
  - Drug effective for unapproved indication [Unknown]
  - Product use in unapproved indication [Unknown]
  - Drug ineffective for unapproved indication [Unknown]
